FAERS Safety Report 4931985-2 (Version None)
Quarter: 2006Q1

REPORT INFORMATION
  Report Type: 
  Country: None (occurrence: None)
  Receive Date: 20060303
  Receipt Date: 20060228
  Transmission Date: 20060701
  Serious: Yes (Other)
  Sender: FDA-Public Use
  Company Number: US-GLAXOSMITHKLINE-A0595924A

PATIENT
  Sex: Female

DRUGS (2)
  1. PAXIL [Suspect]
     Indication: FIBROMYALGIA
     Dosage: 20MG PER DAY
     Route: 048
     Dates: start: 19990101
  2. PAROXETINE HCL [Suspect]
     Indication: FIBROMYALGIA
     Route: 048

REACTIONS (7)
  - ANGER [None]
  - DRUG DEPENDENCE [None]
  - DRUG HYPERSENSITIVITY [None]
  - FEELING ABNORMAL [None]
  - MOOD SWINGS [None]
  - PHARMACEUTICAL PRODUCT COMPLAINT [None]
  - WRONG TECHNIQUE IN DRUG USAGE PROCESS [None]
